FAERS Safety Report 4832083-9 (Version None)
Quarter: 2005Q4

REPORT INFORMATION
  Report Type: 
  Country: None (occurrence: None)
  Receive Date: 20051116
  Receipt Date: 20051105
  Transmission Date: 20060501
  Serious: Yes (Death)
  Sender: FDA-Public Use
  Company Number: CHPA2005US05843

PATIENT
  Age: 41 Year
  Sex: Male
  Weight: 136.1 kg

DRUGS (1)
  1. THERAFLU HOTLIQ MS ND LEMON ORANGE (NCH)(ACETAMINOPHEN (PARACETAMOL), [Suspect]
     Indication: INFLUENZA LIKE ILLNESS
     Dosage: ORAL
     Route: 048
     Dates: start: 20010101, end: 20010101

REACTIONS (5)
  - ELECTROCARDIOGRAM ABNORMAL [None]
  - HAEMOGLOBIN DECREASED [None]
  - INFLUENZA LIKE ILLNESS [None]
  - SELF-MEDICATION [None]
  - THERAPY NON-RESPONDER [None]
